FAERS Safety Report 7437928-4 (Version None)
Quarter: 2011Q2

REPORT INFORMATION
  Report Type: 
  Country: None (occurrence: None)
  Receive Date: 20110426
  Receipt Date: 20110422
  Transmission Date: 20111010
  Serious: Yes (Other)
  Sender: FDA-Public Use
  Company Number: JP-PFIZER INC-2011083787

PATIENT
  Age: 58 Year
  Sex: Male

DRUGS (4)
  1. TRAMAL [Concomitant]
     Indication: PAIN
     Dosage: UNK
     Dates: start: 20110408, end: 20110415
  2. LYRICA [Suspect]
     Dosage: 300 MG DAILY
     Route: 048
     Dates: start: 20101101, end: 20110106
  3. LYRICA [Suspect]
     Dosage: 600 MG DAILY
     Route: 048
     Dates: start: 20110107
  4. LYRICA [Suspect]
     Indication: PAIN
     Dosage: 150 MG DAILY
     Route: 048
     Dates: start: 20101001, end: 20101101

REACTIONS (5)
  - VOMITING [None]
  - CHILLS [None]
  - WITHDRAWAL SYNDROME [None]
  - HYPERHIDROSIS [None]
  - NAUSEA [None]
